FAERS Safety Report 4869860-4 (Version None)
Quarter: 2005Q4

REPORT INFORMATION
  Report Type: 
  Country: None (occurrence: None)
  Receive Date: 20051223
  Receipt Date: 20051216
  Transmission Date: 20060501
  Serious: Yes (Hospitalization, Other)
  Sender: FDA-Public Use
  Company Number: 23339

PATIENT
  Age: 61 Year
  Sex: Female
  Weight: 114.3065 kg

DRUGS (1)
  1. LEUCOVORIN CALCIUM FOR INJ. 100MG - BEDFORD LABS, INC. [Suspect]
     Indication: COLORECTAL CANCER METASTATIC
     Dosage: 40MG
     Dates: start: 20041014, end: 20041021

REACTIONS (3)
  - ASTHENIA [None]
  - DIARRHOEA [None]
  - HYPOTENSION [None]
